FAERS Safety Report 20003691 (Version 1)
Quarter: 2021Q4

REPORT INFORMATION
  Report Type: Report from Study
  Country: RO (occurrence: RO)
  Receive Date: 20211027
  Receipt Date: 20211027
  Transmission Date: 20220303
  Serious: Yes (Death)
  Sender: FDA-Public Use
  Company Number: 2021A783487

PATIENT
  Age: 46 Year
  Sex: Male

DRUGS (1)
  1. TAGRISSO [Suspect]
     Active Substance: OSIMERTINIB
     Indication: Neoplasm malignant
     Route: 048
     Dates: start: 202102

REACTIONS (1)
  - Death [Fatal]

NARRATIVE: CASE EVENT DATE: 20210926
